FAERS Safety Report 16855004 (Version 1)
Quarter: 2019Q3

REPORT INFORMATION
  Report Type: Spontaneous
  Country: DE (occurrence: DE)
  Receive Date: 20190926
  Receipt Date: 20190926
  Transmission Date: 20191005
  Serious: Yes (Other)
  Sender: FDA-Public Use
  Company Number: DE-BIOGEN-2019BI00788462

PATIENT
  Age: 23 Year
  Sex: Female
  Weight: 65 kg

DRUGS (1)
  1. TECFIDERA [Suspect]
     Active Substance: DIMETHYL FUMARATE
     Indication: MULTIPLE SCLEROSIS
     Route: 048
     Dates: start: 20190605, end: 20190831

REACTIONS (6)
  - Fatigue [Recovered/Resolved]
  - Alopecia [Recovered/Resolved]
  - Weight increased [Recovered/Resolved]
  - Skin disorder [Recovered/Resolved]
  - Gingival bleeding [Recovered/Resolved]
  - Flushing [Recovered/Resolved]

NARRATIVE: CASE EVENT DATE: 20190605
